FAERS Safety Report 22115725 (Version 1)
Quarter: 2023Q1

REPORT INFORMATION
  Report Type: Spontaneous
  Country: US (occurrence: None)
  Receive Date: 20230320
  Receipt Date: 20230320
  Transmission Date: 20230417
  Serious: No
  Sender: FDA-Public Use
  Company Number: None

PATIENT
  Age: 85 Year
  Sex: Male
  Weight: 72.71 kg

DRUGS (10)
  1. ABIRATERONE ACETATE [Suspect]
     Active Substance: ABIRATERONE ACETATE
     Indication: Prostate cancer
     Dosage: 1000MG ONCE DAILY ORAL?
     Route: 048
     Dates: start: 202110
  2. AMLODIPINE [Concomitant]
  3. CLOPIDOGREL [Concomitant]
  4. DOXAZOSIN [Concomitant]
  5. FOLIC ACID [Concomitant]
  6. LEUCOVORIN CALCIUM [Concomitant]
  7. METHOTREXATE [Concomitant]
     Active Substance: METHOTREXATE
  8. MONTELUKAST [Concomitant]
  9. ROUSVASTATIN [Concomitant]
  10. VITAMIN D [Concomitant]

REACTIONS (2)
  - Disease progression [None]
  - Prostate cancer [None]
